FAERS Safety Report 12283149 (Version 1)
Quarter: 2016Q2

REPORT INFORMATION
  Report Type: Spontaneous
  Country: US (occurrence: US)
  Receive Date: 20160419
  Receipt Date: 20160419
  Transmission Date: 20160815
  Serious: No
  Sender: FDA-Public Use
  Company Number: US-ABBVIE-15P-163-1497324-00

PATIENT
  Age: 10 Year
  Sex: Female

DRUGS (2)
  1. VITAMIN D [Concomitant]
     Active Substance: CHOLECALCIFEROL
     Indication: PRODUCT USED FOR UNKNOWN INDICATION
     Route: 065
  2. LUPRON DEPOT-PED [Suspect]
     Active Substance: LEUPROLIDE ACETATE
     Indication: PRECOCIOUS PUBERTY
     Route: 030
     Dates: start: 2012, end: 201511

REACTIONS (3)
  - Sinusitis [Recovered/Resolved]
  - Premature menarche [Not Recovered/Not Resolved]
  - Bilateral breast buds [Not Recovered/Not Resolved]

NARRATIVE: CASE EVENT DATE: 201510
